FAERS Safety Report 5350427-9 (Version None)
Quarter: 2007Q2

REPORT INFORMATION
  Report Type: 
  Country: None (occurrence: None)
  Receive Date: 20070605
  Receipt Date: 20070605
  Transmission Date: 20071010
  Serious: Yes (Hospitalization)
  Sender: FDA-Public Use
  Company Number: None

PATIENT
  Sex: Female
  Weight: 62.1 kg

DRUGS (2)
  1. FLUOROURACIL [Suspect]
     Dosage: 3550 MG
  2. LEUCOVORIN CALCIUM [Suspect]
     Dosage: 165 MG

REACTIONS (11)
  - ACIDOSIS HYPERCHLORAEMIC [None]
  - ANION GAP ABNORMAL [None]
  - BALANCE DISORDER [None]
  - ELECTROLYTE IMBALANCE [None]
  - FALL [None]
  - HYPOPHOSPHATAEMIA [None]
  - MENTAL STATUS CHANGES [None]
  - ORAL INTAKE REDUCED [None]
  - RETCHING [None]
  - SOMNOLENCE [None]
  - STOMATITIS [None]
